FAERS Safety Report 9963214 (Version 1)
Quarter: 2014Q1

REPORT INFORMATION
  Report Type: Report from Study
  Country: US (occurrence: US)
  Receive Date: 20140305
  Receipt Date: 20140305
  Transmission Date: 20141002
  Serious: No
  Sender: FDA-Public Use
  Company Number: US-ABBVIE-13P-163-1117699-00

PATIENT
  Age: 40 Year
  Sex: Female

DRUGS (9)
  1. HUMIRA [Suspect]
     Indication: CROHN^S DISEASE
     Dates: start: 20130603, end: 20130603
  2. HUMIRA [Suspect]
     Dates: start: 20130617, end: 20130617
  3. HUMIRA [Suspect]
     Dates: start: 20130701
  4. ENTOCORT [Concomitant]
     Indication: PRODUCT USED FOR UNKNOWN INDICATION
     Dates: start: 201209
  5. METAMUCIL [Concomitant]
     Indication: PRODUCT USED FOR UNKNOWN INDICATION
     Dosage: AT HOUR OF SLEEP
  6. LIALDA [Concomitant]
     Indication: PRODUCT USED FOR UNKNOWN INDICATION
  7. OMEPRAZOLE [Concomitant]
     Indication: PRODUCT USED FOR UNKNOWN INDICATION
  8. UNKNOWN EYE DROPS [Concomitant]
     Indication: GLAUCOMA
  9. LORAZEPAM [Concomitant]
     Indication: INSOMNIA
     Dosage: 1.5-5 MG AS NEEDED

REACTIONS (4)
  - Flatulence [Recovering/Resolving]
  - Abdominal pain [Recovering/Resolving]
  - Injection site pain [Unknown]
  - Dyspnoea [Recovered/Resolved]
